FAERS Safety Report 9998918 (Version 1)
Quarter: 2014Q1

REPORT INFORMATION
  Report Type: Spontaneous
  Country: US (occurrence: None)
  Receive Date: 20140311
  Receipt Date: 20140311
  Transmission Date: 20141002
  Serious: Yes (Death)
  Sender: FDA-Public Use
  Company Number: None

PATIENT
  Age: 13 Year
  Sex: Female
  Weight: 6.35 kg

DRUGS (1)
  1. PHENOBARBITAL [Suspect]
     Indication: EPILEPSY
     Dosage: 1
     Route: 048
     Dates: start: 20140226, end: 20140308

REACTIONS (5)
  - Convulsion [None]
  - Withdrawal syndrome [None]
  - Euthanasia [None]
  - Product substitution issue [None]
  - Product quality issue [None]
